FAERS Safety Report 9437128 (Version 1)
Quarter: 2013Q3

REPORT INFORMATION
  Report Type: Spontaneous
  Country: BR (occurrence: BR)
  Receive Date: 20130802
  Receipt Date: 20130802
  Transmission Date: 20140515
  Serious: Yes (Hospitalization, Other)
  Sender: FDA-Public Use
  Company Number: BR-SANOFI-AVENTIS-2013SA075279

PATIENT
  Age: 8 Year
  Sex: Male
  Weight: 40 kg

DRUGS (8)
  1. LANTUS SOLOSTAR [Suspect]
     Indication: TYPE 1 DIABETES MELLITUS
     Route: 058
     Dates: start: 2008
  2. SOLOSTAR [Suspect]
     Indication: DEVICE THERAPY
     Dates: start: 2008
  3. SERETIDE [Concomitant]
     Indication: ASTHMA
     Dosage: 4 SPRAYS DAILY
     Route: 048
  4. AEROLIN [Concomitant]
     Indication: ASTHMA
     Dosage: 4 SPRAYS DAILY
     Route: 048
  5. SINGULAIR [Concomitant]
     Indication: ASTHMA
     Route: 048
  6. NOVORAPID [Concomitant]
     Indication: TYPE 1 DIABETES MELLITUS
     Route: 058
     Dates: start: 2008
  7. CORTICOSTEROIDS [Concomitant]
     Indication: ASTHMA
     Route: 048
  8. ALLEGRA [Concomitant]
     Indication: ANTIALLERGIC THERAPY
     Route: 048

REACTIONS (4)
  - Asthma [Recovered/Resolved]
  - Dyspnoea [Recovered/Resolved]
  - Hypoglycaemia [Recovered/Resolved]
  - Apathy [Recovered/Resolved]
